FAERS Safety Report 6676083-5 (Version None)
Quarter: 2010Q2

REPORT INFORMATION
  Report Type: 
  Country: None (occurrence: None)
  Receive Date: 20100412
  Receipt Date: 20100402
  Transmission Date: 20101027
  Serious: Yes (Hospitalization)
  Sender: FDA-Public Use
  Company Number: GB-SOLVAY-00208005613

PATIENT
  Age: 25315 Day
  Sex: Male
  Weight: 96 kg

DRUGS (13)
  1. LACTULOSE [Concomitant]
     Indication: CONSTIPATION
     Dosage: DAILY DOSE: 60 MILLILITRE(S)
     Route: 065
     Dates: start: 20060619
  2. DOCUSATE [Concomitant]
     Indication: HYPERTENSION
     Dosage: DAILY DOSE: 200 MILLIGRAM(S)
     Route: 048
     Dates: start: 20060101
  3. DEXAMETHASONE [Concomitant]
     Indication: ASTHENIA
     Dosage: DAILY DOSE: 4 MILLIGRAM(S)
     Route: 065
     Dates: start: 20080609
  4. DOXAZOSIN [Suspect]
     Indication: HYPERTENSION
     Dosage: DAILY DOSE: 8 MILLIGRAM(S)
     Route: 065
     Dates: start: 20060101
  5. ATENOLOL [Suspect]
     Indication: HYPERTENSION
     Dosage: DAILY DOSE: 100 MILLIGRAM(S)
     Route: 065
     Dates: start: 20060101
  6. CALCIUM FOLINATE [Suspect]
     Indication: COLORECTAL CANCER
     Dosage: DAILY DOSE: 450MG 1 IN 2 WEEKS
     Route: 065
     Dates: start: 20080717, end: 20080717
  7. CALCIUM FOLINATE [Suspect]
     Dosage: DAILY DOSE:  UNKNOWN
     Route: 065
  8. FLUOROURACIL [Suspect]
     Indication: COLORECTAL CANCER
     Dosage: DAILY DOSE:  925 MG 1 IN 2 WKS
     Route: 065
     Dates: start: 20080717, end: 20080720
  9. FLUOROURACIL [Suspect]
     Dosage: DAILY DOSE:  UNKNOWN
     Route: 065
  10. IRINOTECAN HYDROCHLORIDE [Suspect]
     Indication: COLORECTAL CANCER
     Dosage: DAILY DOSE:  1 IN 2 WEEKS
     Route: 065
     Dates: start: 20080717, end: 20080717
  11. IRINOTECAN HYDROCHLORIDE [Suspect]
     Dosage: DAILY DOSE:  UNKNOWN
     Route: 065
  12. BLINDED THERAPY [Suspect]
     Indication: COLORECTAL CANCER
     Dosage: DAILY DOSE: 1 DOSAGE FORM
     Route: 048
     Dates: start: 20080717, end: 20080724
  13. PERINDOPRIL ERBUMINE [Suspect]
     Indication: HYPERTENSION
     Dosage: DAILY DOSE: 8 MILLIGRAM(S),
     Route: 048
     Dates: start: 20060101

REACTIONS (5)
  - ASTHENIA [None]
  - BRADYCARDIA [None]
  - CHEST PAIN [None]
  - CONSTIPATION [None]
  - ELECTROCARDIOGRAM ST SEGMENT DEPRESSION [None]
